FAERS Safety Report 9309472 (Version 1)
Quarter: 2013Q2

REPORT INFORMATION
  Report Type: Spontaneous
  Country: US (occurrence: US)
  Receive Date: 20130525
  Receipt Date: 20130525
  Transmission Date: 20140414
  Serious: No
  Sender: FDA-Public Use
  Company Number: US-BRISTOL-MYERS SQUIBB COMPANY-18719146

PATIENT
  Age: 45 Year
  Sex: Female

DRUGS (4)
  1. BYDUREON [Suspect]
     Route: 058
  2. LISINOPRIL [Concomitant]
  3. LEVEMIR [Concomitant]
  4. LANTUS [Concomitant]

REACTIONS (2)
  - Injection site urticaria [Unknown]
  - Injection site nodule [Unknown]
